FAERS Safety Report 19613546 (Version 3)
Quarter: 2021Q3

REPORT INFORMATION
  Report Type: Spontaneous
  Country: US (occurrence: US)
  Receive Date: 20210727
  Receipt Date: 20210824
  Transmission Date: 20211014
  Serious: Yes (Other)
  Sender: FDA-Public Use
  Company Number: US-GLAXOSMITHKLINE-US2021156363

PATIENT
  Sex: Female

DRUGS (3)
  1. ZEJULA [Suspect]
     Active Substance: NIRAPARIB
     Dosage: 200 MG, QD
     Route: 048
     Dates: start: 20210710
  2. ZEJULA [Suspect]
     Active Substance: NIRAPARIB
     Indication: OVARIAN CANCER
     Dosage: 200 MG, QD
     Route: 048
     Dates: start: 202106
  3. ZEJULA [Suspect]
     Active Substance: NIRAPARIB
     Dosage: 200 MG, QD
     Route: 048

REACTIONS (12)
  - Constipation [Unknown]
  - Hirsutism [Unknown]
  - Platelet count decreased [Not Recovered/Not Resolved]
  - Neuropathy peripheral [Unknown]
  - Insomnia [Not Recovered/Not Resolved]
  - Hypertension [Recovered/Resolved]
  - Chest pain [Unknown]
  - White blood cell count decreased [Unknown]
  - Tachycardia [Unknown]
  - Dizziness [Unknown]
  - Heart rate increased [Unknown]
  - Fatigue [Unknown]
